FAERS Safety Report 9330999 (Version 3)
Quarter: 2013Q2

REPORT INFORMATION
  Report Type: Spontaneous
  Country: JP (occurrence: JP)
  Receive Date: 20130605
  Receipt Date: 20130618
  Transmission Date: 20140414
  Serious: No
  Sender: FDA-Public Use
  Company Number: JP-B.I. PHARMACEUTICALS,INC./RIDGEFIELD-2013-BI-15798NB

PATIENT
  Age: 58 Year
  Sex: Male

DRUGS (1)
  1. MICARDIS [Suspect]
     Dosage: 40 MG
     Route: 048
     Dates: start: 20130528, end: 20130603

REACTIONS (3)
  - Dysphonia [Not Recovered/Not Resolved]
  - Dyspnoea [Not Recovered/Not Resolved]
  - Pharyngeal erythema [Not Recovered/Not Resolved]
